FAERS Safety Report 5168486-5 (Version None)
Quarter: 2006Q4

REPORT INFORMATION
  Report Type: 
  Country: None (occurrence: None)
  Receive Date: 20061201
  Receipt Date: 20061116
  Transmission Date: 20070319
  Serious: Yes (Hospitalization)
  Sender: FDA-Public Use
  Company Number: 36995

PATIENT
  Age: 73 Year
  Sex: Male

DRUGS (3)
  1. IOPIDINE [Suspect]
     Indication: INFLAMMATION
     Dosage: OPHT
     Route: 047
     Dates: start: 20061017, end: 20061017
  2. DORZOLAMIDE HYDROCHLORIDE [Concomitant]
  3. DEXAMETHASONE 0.1% SUSPENSION [Concomitant]

REACTIONS (1)
  - MYOCARDIAL INFARCTION [None]
